FAERS Safety Report 23950008 (Version 3)
Quarter: 2024Q3

REPORT INFORMATION
  Report Type: Spontaneous
  Country: TW (occurrence: TW)
  Receive Date: 20240607
  Receipt Date: 20240702
  Transmission Date: 20241016
  Serious: Yes (Death, Hospitalization, Other)
  Sender: BOEHRINGER INGELHEIM
  Company Number: TW-BoehringerIngelheim-2024-BI-032326

PATIENT
  Age: 77 Year
  Sex: Female
  Weight: 60 kg

DRUGS (1)
  1. LINAGLIPTIN [Suspect]
     Active Substance: LINAGLIPTIN
     Indication: Type 2 diabetes mellitus
     Dates: start: 20240527, end: 20240531

REACTIONS (2)
  - Pneumonia [Fatal]
  - Stevens-Johnson syndrome [Not Recovered/Not Resolved]

NARRATIVE: CASE EVENT DATE: 20240529
